FAERS Safety Report 19497760 (Version 2)
Quarter: 2022Q3

REPORT INFORMATION
  Report Type: Other
  Country: JP (occurrence: JP)
  Receive Date: 20210706
  Receipt Date: 20220927
  Transmission Date: 20221026
  Serious: Yes (Death, Hospitalization)
  Sender: FDA-Public Use
  Company Number: JP-CHUGAI-2021004219

PATIENT
  Age: 77 Year
  Sex: Male
  Weight: 51.2 kg

DRUGS (20)
  1. ATEZOLIZUMAB [Suspect]
     Active Substance: ATEZOLIZUMAB
     Indication: Hepatocellular carcinoma
     Dosage: 1200 MILLIGRAM
     Route: 041
     Dates: start: 20210517, end: 20210621
  2. BEVACIZUMAB [Suspect]
     Active Substance: BEVACIZUMAB
     Indication: Hepatocellular carcinoma
     Dosage: 843 MILLIGRAM
     Route: 065
     Dates: start: 20210517, end: 20210621
  3. SYMBICORT [Concomitant]
     Active Substance: BUDESONIDE\FORMOTEROL FUMARATE DIHYDRATE
     Indication: Cough
     Dosage: UNK, BID
     Route: 055
     Dates: start: 20210517
  4. LAGNOS [Concomitant]
     Indication: Hepatic encephalopathy prophylaxis
     Dosage: 12 MILLIGRAM, TID
     Route: 048
     Dates: start: 20210517
  5. POLAPREZINC [Concomitant]
     Active Substance: POLAPREZINC
     Indication: Prophylaxis
     Dosage: 75 MILLIGRAM, BID
     Route: 048
     Dates: start: 20210517
  6. AMINO ACIDS, SOURCE UNSPECIFIED [Concomitant]
     Active Substance: AMINO ACIDS, SOURCE UNSPECIFIED
     Indication: Hypoalbuminaemia
     Dosage: 4.15 GRAM, TID
     Route: 048
     Dates: start: 20210517
  7. HEPAN [Concomitant]
     Indication: Hypoalbuminaemia
     Dosage: 80 GRAM, QD
     Route: 048
     Dates: start: 20210517
  8. SPIRONOLACTONE [Concomitant]
     Active Substance: SPIRONOLACTONE
     Indication: Ascites
     Dosage: 25 MILLIGRAM, QD
     Route: 048
     Dates: start: 20210517
  9. SAMSCA [Concomitant]
     Active Substance: TOLVAPTAN
     Indication: Ascites
     Dosage: 3.75 MILLIGRAM, QD
     Route: 048
     Dates: start: 20210517
  10. CLARITIN [Concomitant]
     Active Substance: LORATADINE
     Indication: Cough
     Dosage: 10 MILLIGRAM, QD
     Route: 048
     Dates: start: 20210517
  11. BISOPROLOL FUMARATE [Concomitant]
     Active Substance: BISOPROLOL FUMARATE
     Indication: Hypertension
     Dosage: 2.5 MILLIGRAM, QD
     Route: 048
     Dates: start: 20210517
  12. ZINC [Concomitant]
     Active Substance: ZINC
     Indication: Taste disorder
     Dosage: 25 MILLIGRAM
     Route: 048
     Dates: start: 20210517
  13. ZOLPIDEM TARTRATE [Concomitant]
     Active Substance: ZOLPIDEM TARTRATE
     Indication: Insomnia
     Dosage: 10 MILLIGRAM
     Route: 048
     Dates: start: 20210517
  14. CALCIUM SULFATE\HERBALS [Concomitant]
     Active Substance: CALCIUM SULFATE\HERBALS
     Indication: Cough
     Dosage: 2.5 GRAM, QD
     Route: 048
     Dates: start: 20210517
  15. CALONAL [Concomitant]
     Active Substance: ACETAMINOPHEN
     Indication: Oropharyngeal pain
     Dosage: UNK, PRN
     Route: 048
     Dates: start: 20210517
  16. SODIUM GUALENATE [Concomitant]
     Active Substance: SODIUM GUALENATE
     Indication: Prophylaxis
     Dosage: UNK
     Dates: start: 20210517
  17. KETOPROFEN [Concomitant]
     Active Substance: KETOPROFEN
     Indication: Back pain
     Dosage: 40 MILLIGRAM, QD
     Route: 061
     Dates: start: 20210517
  18. LINZESS [Concomitant]
     Active Substance: LINACLOTIDE
     Indication: Cough
     Dosage: 0.25 MILLIGRAM, PRN
     Route: 048
     Dates: start: 20210517
  19. FLUOROMETHOLONE [Concomitant]
     Active Substance: FLUOROMETHOLONE
     Indication: Ulcerative keratitis
     Dosage: UNK, BID
     Route: 047
     Dates: start: 20210517
  20. HYALURONATE SODIUM [Concomitant]
     Active Substance: HYALURONATE SODIUM
     Indication: Dry eye
     Dosage: UNK, QID
     Route: 047
     Dates: start: 20210517

REACTIONS (3)
  - Gastrointestinal perforation [Not Recovered/Not Resolved]
  - Malaise [Unknown]
  - Disease progression [Fatal]

NARRATIVE: CASE EVENT DATE: 20210607
